FAERS Safety Report 5011509-4 (Version None)
Quarter: 2006Q2

REPORT INFORMATION
  Report Type: 
  Country: None (occurrence: None)
  Receive Date: 20060524
  Receipt Date: 20060509
  Transmission Date: 20061013
  Serious: Yes (Hospitalization)
  Sender: FDA-Public Use
  Company Number: 012214

PATIENT
  Age: 31 Year
  Sex: Male

DRUGS (8)
  1. PRIALT [Suspect]
     Indication: COMPLEX REGIONAL PAIN SYNDROME
     Dosage: SEE IMAGE
     Route: 037
     Dates: start: 20050329, end: 20050330
  2. CLONIDINE [Concomitant]
  3. PHENERGAN [Concomitant]
  4. DILAUDID [Concomitant]
  5. BACLOFEN [Concomitant]
  6. CYMBALTA [Concomitant]
  7. RESTORIL [Concomitant]
  8. HYDROMORPHONE HCL [Concomitant]

REACTIONS (27)
  - AMNESIA [None]
  - CHROMATURIA [None]
  - CONFUSIONAL STATE [None]
  - DELUSION [None]
  - DEPRESSION [None]
  - DIPLOPIA [None]
  - DIZZINESS [None]
  - DRUG INEFFECTIVE [None]
  - GAIT DISTURBANCE [None]
  - HALLUCINATION, AUDITORY [None]
  - HEADACHE [None]
  - INSOMNIA [None]
  - LEUKOCYTOSIS [None]
  - MENTAL DISORDER [None]
  - MUSCLE SPASMS [None]
  - NAUSEA [None]
  - PAIN [None]
  - PAIN IN EXTREMITY [None]
  - PSYCHOTIC DISORDER [None]
  - PYREXIA [None]
  - SOMNOLENCE [None]
  - TACHYCARDIA [None]
  - TREMOR [None]
  - URINARY RETENTION [None]
  - URINARY TRACT INFECTION [None]
  - VISION BLURRED [None]
  - VOMITING [None]
